FAERS Safety Report 4436750-0 (Version None)
Quarter: 2004Q3

REPORT INFORMATION
  Report Type: 
  Country: None (occurrence: None)
  Receive Date: 20040728
  Receipt Date: 20030715
  Transmission Date: 20050211
  Serious: No
  Sender: FDA-Public Use
  Company Number: 201500

PATIENT
  Age: 37 Year
  Sex: Female
  Weight: 89.3 kg

DRUGS (1)
  1. RITUXAN [Suspect]
     Indication: NON-HODGKIN'S LYMPHOMA
     Dosage: 725 MG,  INTRAVENOUS
     Route: 042
     Dates: start: 20030618

REACTIONS (3)
  - CHEST PAIN [None]
  - DYSPNOEA [None]
  - PRURITUS [None]
